FAERS Safety Report 25451487 (Version 2)
Quarter: 2025Q2

REPORT INFORMATION
  Report Type: Spontaneous
  Country: US (occurrence: US)
  Receive Date: 20250618
  Receipt Date: 20250626
  Transmission Date: 20250716
  Serious: No
  Sender: BAYER HEALTHCARE PHARMACEUTICALS INC.
  Company Number: US-BAYER-2025A079677

PATIENT
  Age: 33 Year
  Sex: Female

DRUGS (1)
  1. MIRENA [Suspect]
     Active Substance: LEVONORGESTREL
     Indication: Intra-uterine contraceptive device insertion
     Dosage: 20?G/DAY
     Route: 015
     Dates: start: 202410

REACTIONS (1)
  - Device implantation error [None]

NARRATIVE: CASE EVENT DATE: 20241001
